FAERS Safety Report 17902376 (Version 2)
Quarter: 2020Q3

REPORT INFORMATION
  Report Type: Report from Study
  Country: None (occurrence: US)
  Receive Date: 20200617
  Receipt Date: 20200916
  Transmission Date: 20201103
  Serious: Yes (Hospitalization, Other)
  Sender: FDA-Public Use
  Company Number: US-ABBVIE-20K-163-3444720-00

PATIENT
  Age: 23 Year
  Sex: Female

DRUGS (5)
  1. HUMIRA [Suspect]
     Active Substance: ADALIMUMAB
     Route: 058
     Dates: start: 202007, end: 202007
  2. HUMIRA [Suspect]
     Active Substance: ADALIMUMAB
     Route: 058
     Dates: start: 2020
  3. HUMIRA [Suspect]
     Active Substance: ADALIMUMAB
     Indication: CROHN^S DISEASE
     Dosage: DAY 1
     Route: 058
     Dates: start: 20200301, end: 20200301
  4. HUMIRA [Suspect]
     Active Substance: ADALIMUMAB
     Dosage: DAY 15
     Route: 058
     Dates: start: 20200315, end: 20200315
  5. HUMIRA [Suspect]
     Active Substance: ADALIMUMAB
     Route: 058
     Dates: start: 20200329, end: 2020

REACTIONS (8)
  - Post procedural fever [Unknown]
  - Adverse food reaction [Unknown]
  - Colectomy [Unknown]
  - Heart rate increased [Unknown]
  - Diarrhoea [Unknown]
  - Pain [Unknown]
  - Abdominal discomfort [Unknown]
  - Postoperative wound infection [Recovered/Resolved]

NARRATIVE: CASE EVENT DATE: 2020
